FAERS Safety Report 8780457 (Version 1)
Quarter: 2012Q4

REPORT INFORMATION
  Report Type: Spontaneous
  Country: US (occurrence: None)
  Receive Date: 20120906
  Receipt Date: 20120906
  Transmission Date: 20130627
  Serious: No
  Sender: FDA-Public Use
  Company Number: None

PATIENT
  Sex: Female

DRUGS (2)
  1. CRESTOR [Suspect]
     Indication: HYPERLIPIDEMIA
     Route: 048
     Dates: start: 20070628, end: 20070827
  2. NIASPAN [Suspect]
     Route: 048
     Dates: start: 20110711, end: 20110801

REACTIONS (1)
  - Muscle spasms [None]
